FAERS Safety Report 5358659-0 (Version None)
Quarter: 2007Q2

REPORT INFORMATION
  Report Type: 
  Country: None (occurrence: None)
  Receive Date: 20070615
  Receipt Date: 20070613
  Transmission Date: 20071010
  Serious: Yes (Other)
  Sender: FDA-Public Use
  Company Number: GB-BRISTOL-MYERS SQUIBB COMPANY-13812847

PATIENT
  Age: 46 Year
  Sex: Male

DRUGS (3)
  1. ETOPOSIDE [Suspect]
     Route: 042
  2. CYTARABINE [Suspect]
     Route: 042
  3. DAUNORUBICIN HCL [Suspect]
     Route: 042

REACTIONS (2)
  - ASPERGILLOSIS [None]
  - FEBRILE NEUTROPENIA [None]
